FAERS Safety Report 23149463 (Version 2)
Quarter: 2024Q1

REPORT INFORMATION
  Report Type: Report from Study
  Country: US (occurrence: US)
  Receive Date: 20231106
  Receipt Date: 20240305
  Transmission Date: 20240410
  Serious: Yes (Hospitalization)
  Sender: FDA-Public Use
  Company Number: US-ABBVIE-5474574

PATIENT
  Sex: Female

DRUGS (2)
  1. RINVOQ [Suspect]
     Active Substance: UPADACITINIB
     Indication: Rheumatoid arthritis
     Route: 048
     Dates: start: 202108
  2. RINVOQ [Suspect]
     Active Substance: UPADACITINIB
     Indication: Rheumatoid arthritis
     Route: 048

REACTIONS (8)
  - Blood pressure increased [Not Recovered/Not Resolved]
  - Arthritis [Not Recovered/Not Resolved]
  - Chest pain [Not Recovered/Not Resolved]
  - Overweight [Not Recovered/Not Resolved]
  - Stress [Unknown]
  - Gait disturbance [Recovering/Resolving]
  - Hypertension [Not Recovered/Not Resolved]
  - Impaired work ability [Recovering/Resolving]

NARRATIVE: CASE EVENT DATE: 20230101
